FAERS Safety Report 4591811-0 (Version None)
Quarter: 2005Q1

REPORT INFORMATION
  Report Type: 
  Country: None (occurrence: None)
  Receive Date: 20050222
  Receipt Date: 20050207
  Transmission Date: 20050727
  Serious: Yes (Other)
  Sender: FDA-Public Use
  Company Number: 03-000276

PATIENT
  Age: 28 Year
  Sex: Female
  Weight: 61.2 kg

DRUGS (5)
  1. ESTROSTEP FE [Suspect]
     Indication: CONTRACEPTION
     Dosage: SEE IMAGE
     Route: 048
     Dates: start: 20020301, end: 20020901
  2. ESTROSTEP FE [Suspect]
     Indication: CONTRACEPTION
     Dosage: SEE IMAGE
     Route: 048
     Dates: start: 20030319
  3. LOESTRIN 21 1.5/30 [Suspect]
     Dosage: 30/1500UG, QD, ORAL
     Route: 048
     Dates: start: 20001101, end: 20010801
  4. ORTHO TRI-CYCLEN [Suspect]
     Indication: CONTRACEPTION
     Dates: start: 20010801, end: 20020301
  5. ASPIRIN [Concomitant]

REACTIONS (2)
  - ECCHYMOSIS [None]
  - FIBROADENOMA OF BREAST [None]
